FAERS Safety Report 6546706-X (Version None)
Quarter: 2010Q1

REPORT INFORMATION
  Report Type: 
  Country: None (occurrence: None)
  Receive Date: 20100122
  Receipt Date: 20100121
  Transmission Date: 20100710
  Serious: Yes (Other)
  Sender: FDA-Public Use
  Company Number: PL-ROCHE-675763

PATIENT
  Age: 45 Year
  Sex: Female

DRUGS (1)
  1. HERCEPTIN [Suspect]
     Indication: BREAST CANCER
     Route: 065

REACTIONS (4)
  - BREAST CANCER [None]
  - CARDIOTOXICITY [None]
  - DISEASE PROGRESSION [None]
  - LEFT VENTRICULAR FAILURE [None]
